FAERS Safety Report 9016034 (Version 1)
Quarter: 2013Q1

REPORT INFORMATION
  Report Type: Spontaneous
  Country: US (occurrence: US)
  Receive Date: 20130116
  Receipt Date: 20130116
  Transmission Date: 20140127
  Serious: Yes (Other)
  Sender: FDA-Public Use
  Company Number: US-ELI_LILLY_AND_COMPANY-US201301003697

PATIENT
  Sex: 0

DRUGS (3)
  1. ALIMTA [Suspect]
     Indication: PERITONEAL MESOTHELIOMA MALIGNANT
     Dosage: UNK
     Dates: start: 201201, end: 201205
  2. ALIMTA [Suspect]
     Dosage: UNK
     Dates: start: 201210
  3. CISPLATINUM [Concomitant]
     Indication: PERITONEAL MESOTHELIOMA MALIGNANT

REACTIONS (4)
  - Malignant neoplasm progression [Not Recovered/Not Resolved]
  - Ascites [Not Recovered/Not Resolved]
  - Night sweats [Recovered/Resolved]
  - Pyrexia [Recovered/Resolved]
